FAERS Safety Report 7071517-9 (Version None)
Quarter: 2010Q4

REPORT INFORMATION
  Report Type: 
  Country: None (occurrence: None)
  Receive Date: 20101020
  Receipt Date: 20101004
  Transmission Date: 20110411
  Serious: Yes (Congenital Anomaly, Other)
  Sender: FDA-Public Use
  Company Number: ACO_01275_2010

PATIENT
  Sex: Male
  Weight: 42.4 kg

DRUGS (4)
  1. AMPYRA [Suspect]
     Indication: ADRENOLEUKODYSTROPHY
     Dosage: (10 MG BID ORAL)
     Route: 048
     Dates: start: 20100401, end: 20100530
  2. FLORINEF [Concomitant]
  3. HYDROCORTISONE [Concomitant]
  4. MULTI-VITAMINS [Concomitant]

REACTIONS (1)
  - PARTIAL SEIZURES [None]
